FAERS Safety Report 4995394-2 (Version None)
Quarter: 2006Q2

REPORT INFORMATION
  Report Type: 
  Country: None (occurrence: None)
  Receive Date: 20060503
  Receipt Date: 20060425
  Transmission Date: 20061013
  Serious: Yes (Hospitalization)
  Sender: FDA-Public Use
  Company Number: 13950

PATIENT
  Age: 43 Year
  Sex: Female
  Weight: 67 kg

DRUGS (5)
  1. FLUOROURACIL [Suspect]
     Indication: COLON CANCER METASTATIC
     Dosage: 720 MG OTH IV
     Route: 042
     Dates: start: 20060215
  2. FLUOROURACIL [Suspect]
     Indication: COLON CANCER METASTATIC
     Dosage: 4320 MG OTH IV
     Route: 042
     Dates: start: 20060215
  3. IRINOTECAN HCL [Suspect]
     Indication: COLON CANCER METASTATIC
     Dosage: 324 MG OTH IV
     Route: 042
     Dates: start: 20060215
  4. LEUCOVORIN [Suspect]
     Indication: COLON CANCER METASTATIC
     Dosage: 360 MG OTH IV
     Route: 042
     Dates: start: 20060215
  5. SUNITINIB MALATE [Suspect]
     Indication: COLON CANCER METASTATIC
     Dosage: 50 MG DAILY PO
     Route: 048
     Dates: start: 20060217

REACTIONS (2)
  - ABDOMINAL PAIN UPPER [None]
  - VOMITING [None]
